FAERS Safety Report 8266895-9 (Version None)
Quarter: 2012Q2

REPORT INFORMATION
  Report Type: 
  Country: None (occurrence: None)
  Receive Date: 20120404
  Receipt Date: 20120404
  Transmission Date: 20120825
  Serious: Yes (Life-Threatening)
  Sender: FDA-Public Use
  Company Number: None

PATIENT
  Age: 80 Year
  Sex: Female
  Weight: 68.0396 kg

DRUGS (4)
  1. MELOXICAM [Suspect]
     Indication: ARTHRITIS
     Dosage: 1 DAILY
     Dates: start: 20120308
  2. TRIAMTERENE [Concomitant]
  3. LUMIGAN [Concomitant]
  4. VERAPAMIL [Suspect]
     Indication: RAYNAUD'S PHENOMENON
     Dosage: 1 DAILY
     Dates: start: 20120308

REACTIONS (5)
  - VISUAL IMPAIRMENT [None]
  - MALAISE [None]
  - PRURITUS GENERALISED [None]
  - PRESYNCOPE [None]
  - HALLUCINATION, VISUAL [None]
